FAERS Safety Report 9190584 (Version 3)
Quarter: 2013Q3

REPORT INFORMATION
  Report Type: Spontaneous
  Country: JP (occurrence: None)
  Receive Date: 20130322
  Receipt Date: 20130703
  Transmission Date: 20140515
  Serious: Yes (Hospitalization)
  Sender: FDA-Public Use
  Company Number: ABR_00877_2013

PATIENT
  Age: 48 Year
  Sex: Male

DRUGS (1)
  1. GLIADEL [Suspect]
     Indication: MALIGNANT GLIOMA
     Dosage: (DF [IMPLANTED IN THE RIGHT INSULA] INTRACEREBRAL)
     Route: 044
     Dates: start: 20130218, end: 20130218

REACTIONS (3)
  - Tumour haemorrhage [None]
  - Vomiting [None]
  - Anger [None]
